FAERS Safety Report 6330621-0 (Version None)
Quarter: 2009Q3

REPORT INFORMATION
  Report Type: 
  Country: None (occurrence: None)
  Receive Date: 20090827
  Receipt Date: 20090825
  Transmission Date: 20100115
  Serious: Yes (Other)
  Sender: FDA-Public Use
  Company Number: JP-BAYER-200911779BYL

PATIENT
  Age: 15 Year
  Sex: Female
  Weight: 45 kg

DRUGS (16)
  1. FLUDARA [Suspect]
     Indication: ALLOGENIC BONE MARROW TRANSPLANTATION THERAPY
     Dosage: UNIT DOSE: 50 MG
     Route: 042
     Dates: start: 20081211, end: 20081214
  2. PROGRAF [Suspect]
     Indication: PROPHYLAXIS AGAINST GRAFT VERSUS HOST DISEASE
     Route: 042
     Dates: start: 20081205
  3. PROGRAF [Suspect]
     Route: 048
     Dates: end: 20090115
  4. SANDIMMUNE [Suspect]
     Indication: ACUTE GRAFT VERSUS HOST DISEASE
     Route: 065
     Dates: start: 20090122
  5. BUSULFAN [Concomitant]
     Indication: ALLOGENIC BONE MARROW TRANSPLANTATION THERAPY
     Dosage: HLA:1 LOCUS MISMATCHED RELATED-DONOR
     Route: 042
     Dates: start: 20081208, end: 20081211
  6. MELPHALAN HYDROCHLORIDE [Concomitant]
     Indication: ALLOGENIC BONE MARROW TRANSPLANTATION THERAPY
     Route: 042
     Dates: start: 20081212, end: 20081213
  7. CLONAZEPAM [Concomitant]
     Indication: CONVULSION PROPHYLAXIS
     Route: 048
     Dates: start: 20081207, end: 20081213
  8. VANCOMYCIN HYDROCHLORIDE [Concomitant]
     Indication: INFECTION PROPHYLAXIS
     Route: 048
     Dates: start: 20081201, end: 20081230
  9. POLYMYXIN-B-SULFATE [Concomitant]
     Indication: INFECTION PROPHYLAXIS
     Route: 048
     Dates: start: 20081201, end: 20081230
  10. FLUCONAZOLE [Concomitant]
     Indication: INFECTION PROPHYLAXIS
     Route: 048
     Dates: start: 20081201
  11. BAKTAR [Concomitant]
     Indication: INFECTION PROPHYLAXIS
     Route: 048
     Dates: start: 20081201, end: 20090327
  12. VICCLOX [Concomitant]
     Indication: INFECTION PROPHYLAXIS
     Route: 048
     Dates: start: 20081208, end: 20090114
  13. DENOSINE [Concomitant]
     Indication: INFECTION PROPHYLAXIS
     Route: 042
     Dates: start: 20081201, end: 20081213
  14. SANDOGLOBULIN [Concomitant]
     Indication: INFECTION PROPHYLAXIS
     Route: 041
     Dates: start: 20081207, end: 20081215
  15. CONCENTRATED RED CELLS [Concomitant]
     Route: 041
     Dates: start: 20081210, end: 20081228
  16. PLATELETS [Concomitant]
     Indication: PLATELET TRANSFUSION
     Route: 041
     Dates: start: 20081210, end: 20090104

REACTIONS (3)
  - ACUTE GRAFT VERSUS HOST DISEASE [None]
  - FEBRILE NEUTROPENIA [None]
  - HYPERTENSION [None]
